FAERS Safety Report 24026352 (Version 1)
Quarter: 2024Q2

REPORT INFORMATION
  Report Type: Spontaneous
  Country: US (occurrence: US)
  Receive Date: 20240628
  Receipt Date: 20240628
  Transmission Date: 20240715
  Serious: No
  Sender: FDA-Public Use
  Company Number: US-AUROBINDO-AUR-APL-2024-020665

PATIENT
  Age: 60 Year
  Sex: Male
  Weight: 83.914 kg

DRUGS (1)
  1. LENALIDOMIDE [Suspect]
     Active Substance: LENALIDOMIDE
     Indication: Plasma cell myeloma
     Dosage: 25 MILLIGRAM, DAILY ON DAYS 1-21, 7 DAYS OFF
     Route: 065

REACTIONS (1)
  - Rash pruritic [Unknown]
